FAERS Safety Report 4537266-3 (Version None)
Quarter: 2004Q4

REPORT INFORMATION
  Report Type: 
  Country: None (occurrence: None)
  Receive Date: 20041223
  Receipt Date: 20041201
  Transmission Date: 20050328
  Serious: Yes (Hospitalization)
  Sender: FDA-Public Use
  Company Number: PHBS2004JP16279

PATIENT
  Sex: Female

DRUGS (3)
  1. PREDNISOLONE [Suspect]
     Indication: SYSTEMIC LUPUS ERYTHEMATOSUS
     Dosage: 10 MG/D
  2. CYCLOSPORINE [Suspect]
     Indication: SYSTEMIC LUPUS ERYTHEMATOSUS
     Dosage: 150 MG/D
     Route: 065
  3. ANTIDIABETICS [Concomitant]

REACTIONS (6)
  - ATELECTASIS [None]
  - C-REACTIVE PROTEIN INCREASED [None]
  - PLEURAL EFFUSION [None]
  - PYREXIA [None]
  - SPLENECTOMY [None]
  - SPLENIC ABSCESS [None]
